FAERS Safety Report 8969625 (Version 3)
Quarter: 2014Q1

REPORT INFORMATION
  Report Type: Spontaneous
  Country: GB (occurrence: GB)
  Receive Date: 20121218
  Receipt Date: 20140321
  Transmission Date: 20141002
  Serious: Yes (Other)
  Sender: FDA-Public Use
  Company Number: PHFR2012GB006129

PATIENT
  Age: 49 Year
  Sex: Male
  Weight: 87 kg

DRUGS (13)
  1. CLOZARIL [Suspect]
     Indication: SCHIZOPHRENIA
     Dosage: UNK
     Route: 048
     Dates: start: 20070821
  2. CLOZARIL [Suspect]
     Dosage: 400 MG, UNK
     Route: 048
  3. CLOZARIL [Suspect]
     Dosage: 450 MG, UNK
  4. VENLAFAXINE [Concomitant]
     Indication: DEPRESSIVE SYMPTOM
     Dosage: 150 MG, BID
     Route: 048
  5. VENLAFAXINE [Concomitant]
     Dosage: 215 MG, UNK
  6. LITHIUM CARBONATE [Concomitant]
     Indication: AFFECTIVE DISORDER
     Dosage: 500 MG, UNK
  7. LITHIUM CARBONATE [Concomitant]
     Dosage: 400 MG, QD
  8. BISOPROLOL [Concomitant]
     Indication: AFFECTIVE DISORDER
     Dosage: 2.5 MG, UNK
     Route: 048
  9. OMEPRAZOLE [Concomitant]
     Indication: GENERAL PHYSICAL HEALTH DETERIORATION
     Dosage: 40 MG, UNK
     Route: 048
  10. ISOSORBIDE MONONITRATE [Concomitant]
     Dosage: 30 MG, BID
     Route: 048
  11. SERETIDE [Concomitant]
     Dosage: 2 DF,(2 PUFFS) BID
     Route: 055
  12. METOCLOPRAMIDE [Concomitant]
     Dosage: UNK UKN, UNK
  13. AMISULPRIDE [Concomitant]
     Dosage: UNK UKN, UNK

REACTIONS (5)
  - Chronic obstructive pulmonary disease [Recovering/Resolving]
  - Productive cough [Unknown]
  - Lower respiratory tract infection [Recovering/Resolving]
  - White blood cell count increased [Not Recovered/Not Resolved]
  - Neutrophil count increased [Not Recovered/Not Resolved]
